FAERS Safety Report 5824973-5 (Version None)
Quarter: 2008Q3

REPORT INFORMATION
  Report Type: 
  Country: None (occurrence: None)
  Receive Date: 20080728
  Receipt Date: 20080625
  Transmission Date: 20090109
  Serious: No
  Sender: FDA-Public Use
  Company Number: US-AMGEN-US289888

PATIENT
  Sex: Female

DRUGS (8)
  1. VECTIBIX [Suspect]
     Indication: COLORECTAL CANCER
     Route: 065
     Dates: start: 20080101
  2. NEXIUM [Concomitant]
     Route: 065
  3. KYTRIL [Concomitant]
     Route: 042
  4. DECADRON [Concomitant]
     Route: 042
  5. BENADRYL [Concomitant]
     Route: 042
  6. IMODIUM [Concomitant]
     Route: 065
  7. HYDRODIURIL [Concomitant]
     Route: 065
  8. ADVIL [Concomitant]
     Route: 065

REACTIONS (1)
  - RASH PRURITIC [None]
